FAERS Safety Report 24044749 (Version 1)
Quarter: 2024Q3

REPORT INFORMATION
  Report Type: Spontaneous
  Country: US (occurrence: US)
  Receive Date: 20240703
  Receipt Date: 20240703
  Transmission Date: 20241016
  Serious: Yes (Death, Hospitalization, Other)
  Sender: DR REDDYS
  Company Number: US-DRL-USA-LIT/USA/24/0009172

PATIENT
  Age: 27 Year
  Sex: Female

DRUGS (3)
  1. AMLODIPINE [Suspect]
     Active Substance: AMLODIPINE BESYLATE
     Indication: Product used for unknown indication
  2. CARVEDILOL [Suspect]
     Active Substance: CARVEDILOL
     Indication: Hypertension
  3. DIPHENHYDRAMINE [Suspect]
     Active Substance: DIPHENHYDRAMINE
     Indication: Product used for unknown indication

REACTIONS (10)
  - Hypotension [Fatal]
  - Overdose [Fatal]
  - Bradycardia [Fatal]
  - Toxicity to various agents [Fatal]
  - Drug interaction [Fatal]
  - Shock [Fatal]
  - Aspiration [Fatal]
  - Hypoxia [Fatal]
  - Lethargy [Fatal]
  - Loss of consciousness [Fatal]
